FAERS Safety Report 5650549-9 (Version None)
Quarter: 2008Q1

REPORT INFORMATION
  Report Type: 
  Country: None (occurrence: None)
  Receive Date: 20080304
  Receipt Date: 20080304
  Transmission Date: 20080703
  Serious: Yes (Hospitalization)
  Sender: FDA-Public Use
  Company Number: None

PATIENT
  Age: 24 Year
  Sex: Female

DRUGS (1)
  1. VANCOMYCIN [Suspect]
     Dosage: RECEIVED AN ANOTHER FACILITY

REACTIONS (8)
  - DIARRHOEA [None]
  - EOSINOPHILIA [None]
  - LIVER FUNCTION TEST ABNORMAL [None]
  - PYREXIA [None]
  - RASH ERYTHEMATOUS [None]
  - RASH MACULO-PAPULAR [None]
  - SKIN PLAQUE [None]
  - SWELLING FACE [None]
